FAERS Safety Report 8351401 (Version 2)
Quarter: 2013Q4

REPORT INFORMATION
  Report Type: Spontaneous
  Country: US (occurrence: US)
  Receive Date: 20120124
  Receipt Date: 20131230
  Transmission Date: 20140711
  Serious: Yes (Other)
  Sender: FDA-Public Use
  Company Number: US-BAYER-2012-006527

PATIENT
  Age: 44 Year
  Sex: Female

DRUGS (5)
  1. YAZ [Suspect]
     Dosage: UNK
     Dates: start: 2006, end: 201004
  2. YASMIN [Suspect]
     Dosage: UNK
     Dates: start: 2006, end: 201004
  3. AMBIEN [Concomitant]
     Dosage: 10 MG, PRN
     Route: 048
  4. CELEBREX [Concomitant]
     Dosage: 200 MG, EVERY DAY
     Route: 048
  5. OMEPRAZOLE [Concomitant]
     Dosage: 20 MG, BID

REACTIONS (3)
  - Cholecystectomy [None]
  - Cholecystitis chronic [None]
  - Injury [None]
